FAERS Safety Report 7691965-3 (Version None)
Quarter: 2011Q3

REPORT INFORMATION
  Report Type: 
  Country: None (occurrence: None)
  Receive Date: 20110818
  Receipt Date: 20110808
  Transmission Date: 20111222
  Serious: Yes (Hospitalization)
  Sender: FDA-Public Use
  Company Number: US-AMGEN-USASP2011040198

PATIENT
  Age: 56 Year
  Sex: Female

DRUGS (1)
  1. ENBREL [Suspect]
     Indication: PSORIASIS
     Dosage: 50 MG, 2 TIMES/WK
     Dates: start: 20110101

REACTIONS (5)
  - INCISION SITE ABSCESS [None]
  - INCISION SITE COMPLICATION [None]
  - HERNIA [None]
  - CHRONIC OBSTRUCTIVE PULMONARY DISEASE [None]
  - URINARY TRACT INFECTION [None]
